FAERS Safety Report 15854955 (Version 1)
Quarter: 2019Q1

REPORT INFORMATION
  Report Type: Spontaneous
  Country: TW (occurrence: TW)
  Receive Date: 20190122
  Receipt Date: 20190122
  Transmission Date: 20190417
  Serious: Yes (Hospitalization)
  Sender: FDA-Public Use
  Company Number: TW-MYLANLABS-2019M1003104

PATIENT
  Age: 75 Year
  Sex: Female

DRUGS (1)
  1. MESALAZINE [Suspect]
     Active Substance: MESALAMINE
     Indication: COLITIS ULCERATIVE
     Dosage: FOR 2 YEARS AND 8 MONTHS
     Route: 065

REACTIONS (2)
  - Respiratory failure [Recovering/Resolving]
  - Organising pneumonia [Recovering/Resolving]
